FAERS Safety Report 13207513 (Version 1)
Quarter: 2017Q1

REPORT INFORMATION
  Report Type: Spontaneous
  Country: US (occurrence: US)
  Receive Date: 20170209
  Receipt Date: 20170209
  Transmission Date: 20170428
  Serious: No
  Sender: FDA-Public Use
  Company Number: US-SA-2017SA005207

PATIENT
  Sex: Female

DRUGS (13)
  1. BACLOFEN. [Concomitant]
     Active Substance: BACLOFEN
  2. COLCHICINE. [Concomitant]
     Active Substance: COLCHICINE
  3. CARVEDILOL. [Concomitant]
     Active Substance: CARVEDILOL
  4. ALENDRONATE [Concomitant]
     Active Substance: ALENDRONATE SODIUM
  5. CITALOPRAM [Concomitant]
     Active Substance: CITALOPRAM HYDROBROMIDE
  6. PRALUENT [Suspect]
     Active Substance: ALIROCUMAB
     Indication: TYPE IIA HYPERLIPIDAEMIA
     Route: 065
     Dates: start: 20160826
  7. CLOTRIMAZOLE/BETAMETHASONE [Concomitant]
     Dosage: CRE 1-0.05%
  8. ENALAPRIL [Concomitant]
     Active Substance: ENALAPRIL
  9. CLOPIDOGREL [Concomitant]
     Active Substance: CLOPIDOGREL BISULFATE
  10. FENTANYL. [Concomitant]
     Active Substance: FENTANYL
  11. ATORVASTATIN [Concomitant]
     Active Substance: ATORVASTATIN
  12. CEFDINIR. [Concomitant]
     Active Substance: CEFDINIR
  13. ALIROCUMAB PREFILLED PEN [Concomitant]
     Active Substance: ALIROCUMAB
     Indication: TYPE IIA HYPERLIPIDAEMIA
     Dates: start: 20160826

REACTIONS (2)
  - Hypokinesia [Not Recovered/Not Resolved]
  - Myalgia [Not Recovered/Not Resolved]
